FAERS Safety Report 18231742 (Version 1)
Quarter: 2020Q3

REPORT INFORMATION
  Report Type: Spontaneous
  Country: US (occurrence: US)
  Receive Date: 20200903
  Receipt Date: 20200903
  Transmission Date: 20201103
  Serious: Yes (Disabling)
  Sender: FDA-Public Use
  Company Number: None

PATIENT
  Age: 29 Year
  Sex: Female
  Weight: 48.15 kg

DRUGS (1)
  1. KRATOM [Suspect]
     Active Substance: HERBALS\MITRAGYNINE
     Indication: ALCOHOL WITHDRAWAL SYNDROME
     Dates: start: 20180820

REACTIONS (2)
  - Drug dependence [None]
  - Family stress [None]

NARRATIVE: CASE EVENT DATE: 20200818
